FAERS Safety Report 14747776 (Version 3)
Quarter: 2018Q3

REPORT INFORMATION
  Report Type: Spontaneous
  Country: FR (occurrence: FR)
  Receive Date: 20180411
  Receipt Date: 20180914
  Transmission Date: 20181010
  Serious: Yes (Other)
  Sender: FDA-Public Use
  Company Number: PHHY2018FR060776

PATIENT
  Age: 71 Year
  Sex: Female

DRUGS (5)
  1. DEXAMETHASONE. [Suspect]
     Active Substance: DEXAMETHASONE
     Indication: PLASMA CELL MYELOMA
     Dosage: 20 MG ON DAYS 1?2, 4?5, 8?9, AND 11?12 OF EACH CYCLE
     Route: 065
  2. DEXAMETHASONE. [Suspect]
     Active Substance: DEXAMETHASONE
     Dosage: 40 MG, DAYS 1, 8, 15, 22 EVERY 28 D; REPEATED EVERY 4 WK
     Route: 048
  3. LENALIDOMIDE [Suspect]
     Active Substance: LENALIDOMIDE
     Dosage: DAYS 1?21 EVERY 28 D
     Route: 048
  4. LENALIDOMIDE [Suspect]
     Active Substance: LENALIDOMIDE
     Indication: PLASMA CELL MYELOMA
     Dosage: 25 MG, DAYS 1?21 EVERY 28 D
     Route: 048
  5. BORTEZOMIB. [Suspect]
     Active Substance: BORTEZOMIB
     Indication: PLASMA CELL MYELOMA
     Dosage: ON DAYS 1?4?8?11 IN 21?DAY CYCLES
     Route: 058

REACTIONS (8)
  - Plasma cells present [Recovering/Resolving]
  - Neoplasm progression [Recovering/Resolving]
  - Bone pain [Recovering/Resolving]
  - Plasma cell myeloma [Recovering/Resolving]
  - Disease progression [Recovering/Resolving]
  - Monoclonal immunoglobulin present [Recovering/Resolving]
  - Neuropathy peripheral [Not Recovered/Not Resolved]
  - Anaemia [Recovering/Resolving]

NARRATIVE: CASE EVENT DATE: 2014
